FAERS Safety Report 17809795 (Version 5)
Quarter: 2020Q4

REPORT INFORMATION
  Report Type: Report from Study
  Country: MX (occurrence: MX)
  Receive Date: 20200520
  Receipt Date: 20201015
  Transmission Date: 20210113
  Serious: Yes (Death, Life-Threatening, Hospitalization)
  Sender: FDA-Public Use
  Company Number: MX-EXELIXIS-XL18420029869

PATIENT
  Age: 73 Year
  Sex: Male
  Weight: 74 kg

DRUGS (3)
  1. XL184 [Suspect]
     Active Substance: CABOZANTINIB
     Indication: HEPATOCELLULAR CARCINOMA
     Dosage: 40 MG, QD
     Route: 048
     Dates: start: 20200127
  2. ATEZOLIZUMAB. [Suspect]
     Active Substance: ATEZOLIZUMAB
     Indication: HEPATOCELLULAR CARCINOMA
     Dosage: 1200 MG, Q3WEEKS
     Route: 042
     Dates: start: 20200127
  3. METOPROLOL. [Concomitant]
     Active Substance: METOPROLOL

REACTIONS (3)
  - Diarrhoea [Recovered/Resolved]
  - Malignant neoplasm progression [Fatal]
  - Dehydration [Recovered/Resolved]

NARRATIVE: CASE EVENT DATE: 20200511
